FAERS Safety Report 10076150 (Version 1)
Quarter: 2014Q2

REPORT INFORMATION
  Report Type: Spontaneous
  Country: US (occurrence: US)
  Receive Date: 20140414
  Receipt Date: 20140414
  Transmission Date: 20141212
  Serious: Yes (Death, Hospitalization)
  Sender: FDA-Public Use
  Company Number: US-SA-2014SA041490

PATIENT
  Age: 70 Year
  Sex: Male

DRUGS (6)
  1. LOVENOX [Suspect]
     Indication: THROMBOSIS
     Route: 065
     Dates: start: 20140221
  2. ARIXTRA [Suspect]
     Indication: THROMBOSIS
     Route: 058
     Dates: start: 2012, end: 20140221
  3. ARIXTRA [Suspect]
     Indication: THROMBOSIS
     Route: 058
     Dates: start: 2012, end: 20140221
  4. VIMPAT [Concomitant]
  5. HYDROMORPHONE HYDROCHLORIDE [Concomitant]
  6. HYDROCODONE [Concomitant]

REACTIONS (3)
  - Death [Fatal]
  - Thrombosis [Unknown]
  - Off label use [Unknown]
